FAERS Safety Report 8140421-7 (Version None)
Quarter: 2012Q1

REPORT INFORMATION
  Report Type: 
  Country: None (occurrence: None)
  Receive Date: 20120216
  Receipt Date: 20120208
  Transmission Date: 20120608
  Serious: Yes (Death, Hospitalization)
  Sender: FDA-Public Use
  Company Number: US-VERTEX PHARMACEUTICALS INC.-AE-2012-001541

PATIENT
  Age: 58 Year
  Sex: Female

DRUGS (3)
  1. RIBAVIRIN [Concomitant]
     Indication: HEPATITIS C
     Dates: start: 20111122
  2. INCIVEK [Suspect]
     Indication: HEPATITIS C
     Route: 048
     Dates: start: 20111122
  3. PEGASYS [Concomitant]
     Indication: HEPATITIS C
     Dates: start: 20111122

REACTIONS (3)
  - ANAEMIA [None]
  - PULMONARY HYPERTENSION [None]
  - PERICARDIAL EFFUSION [None]
